FAERS Safety Report 18345956 (Version 1)
Quarter: 2020Q4

REPORT INFORMATION
  Report Type: Spontaneous
  Country: US (occurrence: US)
  Receive Date: 20201005
  Receipt Date: 20201005
  Transmission Date: 20210114
  Serious: Yes (Other)
  Sender: FDA-Public Use
  Company Number: US-BAUSCH-BL-2020-027901

PATIENT
  Age: 81 Year
  Sex: Female

DRUGS (6)
  1. DIPHENHYDRAMINE. [Concomitant]
     Active Substance: DIPHENHYDRAMINE
     Indication: PRODUCT USED FOR UNKNOWN INDICATION
  2. SYNTHROID [Concomitant]
     Active Substance: LEVOTHYROXINE SODIUM
     Indication: PRODUCT USED FOR UNKNOWN INDICATION
  3. METFORMIN [Concomitant]
     Active Substance: METFORMIN HYDROCHLORIDE
     Indication: PRODUCT USED FOR UNKNOWN INDICATION
  4. INSULIN [Concomitant]
     Active Substance: INSULIN NOS
     Indication: PRODUCT USED FOR UNKNOWN INDICATION
  5. ADVANCED EYE RELIEF DRY EYE REJUVENATION [Suspect]
     Active Substance: GLYCERIN\PROPYLENE GLYCOL
     Indication: DRY EYE
     Dosage: AS NEEDED
     Route: 047
  6. METOPROLOL. [Concomitant]
     Active Substance: METOPROLOL
     Indication: PRODUCT USED FOR UNKNOWN INDICATION

REACTIONS (4)
  - Suspected COVID-19 [Recovered/Resolved]
  - Influenza [Recovered/Resolved]
  - Nightmare [Unknown]
  - Hallucination [Unknown]

NARRATIVE: CASE EVENT DATE: 2020
